FAERS Safety Report 4441517-3 (Version None)
Quarter: 2004Q3

REPORT INFORMATION
  Report Type: 
  Country: None (occurrence: None)
  Receive Date: 20040728
  Receipt Date: 20040511
  Transmission Date: 20050211
  Serious: No
  Sender: FDA-Public Use
  Company Number: USA040567213

PATIENT
  Age: 44 Year
  Sex: Female
  Weight: 82 kg

DRUGS (2)
  1. STRATTERA [Suspect]
     Indication: ATTENTION DEFICIT/HYPERACTIVITY DISORDER
     Dosage: 40 MG DAY
     Dates: start: 20040510
  2. ZOLOFT [Concomitant]

REACTIONS (4)
  - HEADACHE [None]
  - INSOMNIA [None]
  - MEDICATION ERROR [None]
  - NAUSEA [None]
